FAERS Safety Report 8963887 (Version 2)
Quarter: 2014Q2

REPORT INFORMATION
  Report Type: Spontaneous
  Country: US (occurrence: US)
  Receive Date: 20121213
  Receipt Date: 20130810
  Transmission Date: 20141212
  Serious: Yes (Other)
  Sender: FDA-Public Use
  Company Number: US-BAXTER-2012BAX027077

PATIENT
  Sex: 0

DRUGS (1)
  1. FORANE [Suspect]
     Indication: BRONCHOSPASM

REACTIONS (1)
  - Supraventricular tachycardia [Recovered/Resolved]
